FAERS Safety Report 9063805 (Version 2)
Quarter: 2013Q2

REPORT INFORMATION
  Report Type: Report from Study
  Country: US (occurrence: US)
  Receive Date: 20130131
  Receipt Date: 20130423
  Transmission Date: 20140414
  Serious: Yes (Other)
  Sender: FDA-Public Use
  Company Number: US-ABBOTT-12P-163-1017494-00

PATIENT
  Age: 56 Year
  Sex: Male

DRUGS (16)
  1. HUMIRA [Suspect]
     Indication: PSORIASIS
     Dates: start: 2009, end: 201210
  2. HUMIRA [Suspect]
     Dates: start: 20121031, end: 201302
  3. ENBREL [Suspect]
     Indication: PRODUCT USED FOR UNKNOWN INDICATION
     Dates: start: 201303
  4. METFORMIN [Concomitant]
     Indication: DIABETES MELLITUS
     Dosage: 100 MG X 1/2 TAB IN A.M. AND 1//2 TAB IN P.M.
  5. AMPHETAMINE SALTS [Concomitant]
     Indication: SLEEP APNOEA SYNDROME
  6. FISH OIL [Concomitant]
     Indication: CARDIAC DISORDER
  7. ASPIRIN [Concomitant]
     Indication: PRODUCT USED FOR UNKNOWN INDICATION
  8. NASONEX [Concomitant]
     Indication: HYPERSENSITIVITY
     Dosage: 50 MCG 1 SPRAY EACH NOSTRIL TWICE DAILY
  9. NASONEX [Concomitant]
     Indication: ASTHMA
  10. COMBIVENT INHALER AEROSOL [Concomitant]
     Indication: ASTHMA
  11. TRIAMTERENE/HCTZ [Concomitant]
     Indication: PRODUCT USED FOR UNKNOWN INDICATION
     Dosage: (37.5/25 MG TABLET) IN THE AM
  12. CARVEDILOL [Concomitant]
     Indication: HYPERTENSION
  13. PANTOPRAZOLE [Concomitant]
     Indication: GASTRIC DISORDER
  14. RANITIDINE [Concomitant]
     Indication: GASTROOESOPHAGEAL REFLUX DISEASE
  15. BUSPIRONE [Concomitant]
     Indication: PRODUCT USED FOR UNKNOWN INDICATION
  16. SIMVASTATIN [Concomitant]
     Indication: BLOOD CHOLESTEROL INCREASED

REACTIONS (13)
  - Coronary artery occlusion [Not Recovered/Not Resolved]
  - Myocardial infarction [Not Recovered/Not Resolved]
  - Renal cancer [Unknown]
  - Psoriasis [Unknown]
  - Skin wound [Unknown]
  - Ulcer [Unknown]
  - Constipation [Unknown]
  - Pain [Unknown]
  - Dyspnoea [Unknown]
  - Drug ineffective [Not Recovered/Not Resolved]
  - Psoriasis [Not Recovered/Not Resolved]
  - Palpitations [Not Recovered/Not Resolved]
  - Middle insomnia [Not Recovered/Not Resolved]
